FAERS Safety Report 4862769-1 (Version None)
Quarter: 2005Q4

REPORT INFORMATION
  Report Type: 
  Country: None (occurrence: None)
  Receive Date: 20051219
  Receipt Date: 20051201
  Transmission Date: 20060501
  Serious: No
  Sender: FDA-Public Use
  Company Number: 2005BI011046

PATIENT
  Age: 34 Year
  Sex: Male

DRUGS (4)
  1. AVONEX [Suspect]
     Indication: MULTIPLE SCLEROSIS
     Dosage: 30 UG; QW; IM
     Route: 030
     Dates: start: 19960131, end: 20030101
  2. AVONEX [Suspect]
     Indication: MULTIPLE SCLEROSIS
     Dosage: 30 UG; QW; IM
     Route: 030
     Dates: start: 20030101
  3. NATALIZUMAB [Suspect]
     Indication: MULTIPLE SCLEROSIS
     Dosage: 300 MG, QM, IV
     Route: 042
     Dates: start: 20050225, end: 20050225
  4. LEXAPRO [Concomitant]

REACTIONS (1)
  - ANAPHYLACTIC SHOCK [None]
